FAERS Safety Report 9162321 (Version 1)
Quarter: 2013Q1

REPORT INFORMATION
  Report Type: Spontaneous
  Country: JP (occurrence: JP)
  Receive Date: 20130314
  Receipt Date: 20130314
  Transmission Date: 20140127
  Serious: Yes (Hospitalization)
  Sender: FDA-Public Use
  Company Number: US-MYLANLABS-2013S1004814

PATIENT
  Age: 9 Decade
  Sex: Male
  Weight: 40 kg

DRUGS (9)
  1. PRAMIPEXOLE [Suspect]
     Indication: PARKINSON^S DISEASE
     Dosage: 0.25 MG/DAY
     Route: 065
  2. PRAMIPEXOLE [Suspect]
     Indication: PARKINSON^S DISEASE
     Dosage: 0.5 MG/DAY
     Route: 065
  3. PRAMIPEXOLE [Suspect]
     Indication: PARKINSON^S DISEASE
     Dosage: 1.5 MG/DAY
     Route: 065
  4. PRAMIPEXOLE [Suspect]
     Indication: PARKINSON^S DISEASE
     Dosage: 2.25 MG/DAY
     Route: 065
  5. PRAMIPEXOLE [Suspect]
     Indication: PARKINSON^S DISEASE
     Dosage: 3 MG/DAY
     Route: 065
  6. LEVODOPA W/BENSERAZIDE [Concomitant]
     Route: 065
  7. LANSOPRAZOLE [Concomitant]
     Route: 065
  8. DROXIDOPA [Concomitant]
     Route: 065
  9. AMANTADINE [Concomitant]
     Route: 065

REACTIONS (1)
  - Inappropriate antidiuretic hormone secretion [Recovered/Resolved]
